FAERS Safety Report 7869684-X (Version None)
Quarter: 2011Q4

REPORT INFORMATION
  Report Type: 
  Country: None (occurrence: None)
  Receive Date: 20111028
  Receipt Date: 20110106
  Transmission Date: 20120403
  Serious: No
  Sender: FDA-Public Use
  Company Number: US-AMGEN-USASP2010012112

PATIENT
  Sex: Female

DRUGS (1)
  1. ENBREL [Suspect]
     Indication: RHEUMATOID ARTHRITIS
     Dosage: 50 MG, QWK
     Dates: start: 20101206

REACTIONS (8)
  - FALL [None]
  - POLLAKIURIA [None]
  - DECREASED APPETITE [None]
  - DIZZINESS [None]
  - ASTHENIA [None]
  - CONTUSION [None]
  - HEADACHE [None]
  - GASTROENTERITIS VIRAL [None]
